FAERS Safety Report 19114878 (Version 1)
Quarter: 2021Q2

REPORT INFORMATION
  Report Type: Spontaneous
  Country: NL (occurrence: ES)
  Receive Date: 20210409
  Receipt Date: 20210409
  Transmission Date: 20210717
  Serious: Yes (Other)
  Sender: FDA-Public Use
  Company Number: ES-FRESENIUS KABI-FK202103304

PATIENT
  Age: 36 Year
  Sex: Female
  Weight: 50 kg

DRUGS (10)
  1. PROPOFOL 1% FRESENIUS [Suspect]
     Active Substance: PROPOFOL
     Indication: CARDIAC OPERATION
     Dosage: PROPOFOL LIPOVEN FRESENIUS 10MG/ML EMULSION FOR INJECTION/INFUSION, 10 VIALS OF 100 ML
     Route: 042
     Dates: start: 20201105, end: 20201105
  2. MIDAZOLAM HYDROCHLORIDE. [Suspect]
     Active Substance: MIDAZOLAM HYDROCHLORIDE
     Indication: CARDIAC OPERATION
     Dosage: MIDAZOLAM NORMON 50 MG/10 ML SOLUTION FOR INJECTION EFG, 50 AMPOULES OF 10 ML
     Route: 042
     Dates: start: 20201105, end: 20201105
  3. TRANEXAMIC ACID. [Suspect]
     Active Substance: TRANEXAMIC ACID
     Indication: CARDIAC OPERATION
     Dosage: TRANEXAMIC ACID CARINOPHARM IMPORTED MEDICINE
     Route: 042
     Dates: start: 20201105, end: 20201105
  4. ROCURONIUM BROMIDE. [Concomitant]
     Active Substance: ROCURONIUM BROMIDE
     Indication: CARDIAC OPERATION
     Dosage: ROCURONIUM B. BRAUN 10 MG/ML SOLUTION FOR INJECTION/INFUSION EFG, 10 VIALS OF 10 ML
     Route: 042
     Dates: start: 20201105, end: 20201105
  5. LEVOBUPIVACAINE HYDROCHLORIDE [Suspect]
     Active Substance: LEVOBUPIVACAINE HYDROCHLORIDE
     Indication: CARDIAC OPERATION
     Dosage: LEVOBUPIVACAINA G.E.S 2.5MG/ML SOLUTION FOR INJECTION/INFUSION EFG, 10 AMPOULES OF 10 ML
     Route: 042
     Dates: start: 20201105, end: 20201105
  6. ROPIVACAINE FRESENIUS KABI (NOT SPECIFIED) [Suspect]
     Active Substance: ROPIVACAINE
     Indication: CARDIAC OPERATION
     Dosage: ROPIVACAINE KABI 2 MG/ML SOLUTION FOR INFUSION EFG, 5 BAGS OF 100 ML
     Route: 042
     Dates: start: 20201105, end: 20201105
  7. PHENYLEPHRINE HYDROCHLORIDE. [Concomitant]
     Active Substance: PHENYLEPHRINE HYDROCHLORIDE
     Indication: CARDIAC OPERATION
     Dosage: PHENYLEPHRINE AGUETTANT 50 MICROGRAMS/ML SOLUTION FOR INJECTION IN PRE?FILLED SYRINGE, 10 SYRINGES O
     Route: 042
     Dates: start: 20201105, end: 20201105
  8. ESMOLOL HYDROCHLORIDE. [Concomitant]
     Active Substance: ESMOLOL HYDROCHLORIDE
     Indication: CARDIAC OPERATION
     Dosage: ESMOLOL HYDROCHLORIDE (5025CH)
     Route: 042
     Dates: start: 20201105, end: 20201105
  9. CICLOSPORIN [Concomitant]
     Active Substance: CYCLOSPORINE
     Indication: IMMUNOSUPPRESSANT DRUG THERAPY
     Dosage: CICLOSPORIN (406A)
     Route: 048
  10. MYCOPHENOLATE MOFETIL. [Concomitant]
     Active Substance: MYCOPHENOLATE MOFETIL
     Indication: IMMUNOSUPPRESSANT DRUG THERAPY
     Dosage: MYCOPHENOLATE MOFETIL ACCORD 500 MG FILM?COATED TABLETS, 150 TABLETS
     Route: 048

REACTIONS (1)
  - Seizure [Recovered/Resolved]

NARRATIVE: CASE EVENT DATE: 20201105
